FAERS Safety Report 14141422 (Version 1)
Quarter: 2017Q4

REPORT INFORMATION
  Report Type: Spontaneous
  Country: US (occurrence: US)
  Receive Date: 20171030
  Receipt Date: 20171030
  Transmission Date: 20180321
  Serious: No
  Sender: FDA-Public Use
  Company Number: US-009507513-1710USA013687

PATIENT
  Sex: Female
  Weight: 99.77 kg

DRUGS (1)
  1. NEXPLANON [Suspect]
     Active Substance: ETONOGESTREL
     Indication: CONTRACEPTION
     Dosage: 1 IMPLANT, 3 YEARS IMPLANT,UNK, LEFT ARM
     Route: 059
     Dates: start: 20161220

REACTIONS (3)
  - Implant site pain [Unknown]
  - Implant site paraesthesia [Unknown]
  - Implant site reaction [Unknown]

NARRATIVE: CASE EVENT DATE: 2017
